FAERS Safety Report 19386240 (Version 3)
Quarter: 2021Q3

REPORT INFORMATION
  Report Type: Report from Study
  Country: AU (occurrence: AU)
  Receive Date: 20210607
  Receipt Date: 20210929
  Transmission Date: 20211014
  Serious: Yes (Hospitalization, Other)
  Sender: FDA-Public Use
  Company Number: NVSC2021AU121748

PATIENT
  Age: 60 Year
  Sex: Female

DRUGS (1)
  1. MAYZENT [Suspect]
     Active Substance: SIPONIMOD
     Indication: SECONDARY PROGRESSIVE MULTIPLE SCLEROSIS
     Dosage: 2 MG, QD
     Route: 048
     Dates: start: 20210521, end: 202106

REACTIONS (6)
  - Delirium [Unknown]
  - Dysphagia [Unknown]
  - Pneumonia [Recovering/Resolving]
  - General physical health deterioration [Unknown]
  - Speech disorder [Unknown]
  - Seizure [Unknown]

NARRATIVE: CASE EVENT DATE: 20210525
